FAERS Safety Report 15193535 (Version 7)
Quarter: 2022Q1

REPORT INFORMATION
  Report Type: Spontaneous
  Country: US (occurrence: US)
  Receive Date: 20180725
  Receipt Date: 20220328
  Transmission Date: 20220424
  Serious: Yes (Disabling, Other)
  Sender: FDA-Public Use
  Company Number: US-TEVA-2018-US-931800

PATIENT
  Age: 41 Year
  Sex: Female
  Weight: 71.21 kg

DRUGS (12)
  1. DOCETAXEL [Suspect]
     Active Substance: DOCETAXEL
     Indication: Triple positive breast cancer
     Dosage: 75MG/M2, EVERY THREE WEEKS, 4 CYCLES
     Route: 042
     Dates: start: 20150827, end: 20151124
  2. CARBOPLATIN [Suspect]
     Active Substance: CARBOPLATIN
     Indication: Triple positive breast cancer
     Dosage: 600 MG/60 ML, BY AUC, EVERY THREE WEEKS, 4 CYCLES
     Route: 042
     Dates: start: 20150827, end: 20151124
  3. HERCEPTIN [Suspect]
     Active Substance: TRASTUZUMAB
     Indication: Triple positive breast cancer
     Route: 042
     Dates: start: 20150827, end: 201608
  4. PERJETA [Suspect]
     Active Substance: PERTUZUMAB
     Indication: Triple positive breast cancer
     Dosage: 420 MG/14 ML
     Route: 042
     Dates: start: 20150827, end: 20160105
  5. METFORMIN [Concomitant]
     Active Substance: METFORMIN HYDROCHLORIDE
     Indication: Type 2 diabetes mellitus
     Dosage: 1000 MILLIGRAM DAILY;
     Route: 048
     Dates: start: 20150101
  6. CRESTOR [Concomitant]
     Active Substance: ROSUVASTATIN CALCIUM
     Indication: Hyperlipidaemia
     Route: 048
     Dates: start: 2015, end: 2016
  7. DEXAMETHASONE [Concomitant]
     Active Substance: DEXAMETHASONE
     Indication: Premedication
     Dosage: 16 MILLIGRAM DAILY; START THE MORNING OF THE DAY PRIOR TO CHEMO X 7 DOSES
     Route: 048
  8. HYDROCORTISONE [Concomitant]
     Active Substance: HYDROCORTISONE
     Indication: Premedication
     Route: 065
  9. FERROUS SULFATE ANHYDROUS [Concomitant]
     Active Substance: FERROUS SULFATE ANHYDROUS
     Indication: Iron deficiency anaemia
     Route: 042
     Dates: start: 201507
  10. FERROUS SULFATE ANHYDROUS [Concomitant]
     Active Substance: FERROUS SULFATE ANHYDROUS
     Route: 042
     Dates: start: 20151204
  11. FERROUS SULFATE ANHYDROUS [Concomitant]
     Active Substance: FERROUS SULFATE ANHYDROUS
     Route: 042
     Dates: start: 20151211
  12. LISINOPRIL [Concomitant]
     Active Substance: LISINOPRIL
     Indication: Hypertension
     Dosage: 10 MILLIGRAM DAILY;
     Route: 048

REACTIONS (13)
  - Alopecia areata [Not Recovered/Not Resolved]
  - Myelosuppression [Unknown]
  - Hair texture abnormal [Not Recovered/Not Resolved]
  - Hair colour changes [Not Recovered/Not Resolved]
  - Fatigue [Unknown]
  - Diarrhoea [Unknown]
  - Heavy menstrual bleeding [Unknown]
  - Nausea [Unknown]
  - Dysgeusia [Unknown]
  - Chest discomfort [Recovered/Resolved]
  - Dyspnoea [Unknown]
  - Drug hypersensitivity [Unknown]
  - Anaemia [Unknown]

NARRATIVE: CASE EVENT DATE: 20150101
